FAERS Safety Report 4769079-1 (Version None)
Quarter: 2005Q3

REPORT INFORMATION
  Report Type: 
  Country: None (occurrence: None)
  Receive Date: 20050906
  Receipt Date: 20050503
  Transmission Date: 20060218
  Serious: No
  Sender: FDA-Public Use
  Company Number: 2005-BP-06422BP

PATIENT
  Age: 73 Year
  Sex: Female

DRUGS (6)
  1. SPIRIVA [Suspect]
     Indication: LUNG DISORDER
     Dosage: 18 MCG (18 MCG,QD), IH
     Route: 055
     Dates: start: 20050415, end: 20050416
  2. SPIRIVA [Suspect]
     Indication: NASOPHARYNGITIS
     Dosage: 18 MCG (18 MCG,QD), IH
     Route: 055
     Dates: start: 20050415, end: 20050416
  3. PLAQUENIL [Suspect]
     Indication: SYSTEMIC LUPUS ERYTHEMATOSUS
  4. SYNTHROID [Concomitant]
  5. GLUCOSAMINE (GLUCOSAMINE) [Concomitant]
  6. CHONDROITIN (CHONDROITIN SULFATE SODIUM) [Concomitant]

REACTIONS (2)
  - CONSTIPATION [None]
  - INSOMNIA [None]
